FAERS Safety Report 8458630-6 (Version None)
Quarter: 2012Q2

REPORT INFORMATION
  Report Type: 
  Country: None (occurrence: None)
  Receive Date: 20120622
  Receipt Date: 20120614
  Transmission Date: 20120825
  Serious: Yes (Hospitalization, Other)
  Sender: FDA-Public Use
  Company Number: JP-JNJFOC-20081002391

PATIENT
  Sex: Male
  Weight: 60.4 kg

DRUGS (32)
  1. PREDNISOLONE [Concomitant]
     Indication: COLITIS ULCERATIVE
  2. BARYTGEN [Concomitant]
     Route: 048
     Dates: start: 20080806, end: 20080806
  3. OLIVE OIL [Concomitant]
     Route: 048
     Dates: start: 20080806, end: 20080806
  4. REMICADE [Suspect]
     Route: 042
     Dates: start: 20080220
  5. REMICADE [Suspect]
     Route: 042
     Dates: start: 20080416
  6. HUMALOG [Concomitant]
     Indication: DIABETES MELLITUS
  7. NOVOLIN N [Concomitant]
     Indication: DIABETES MELLITUS
     Dates: end: 20080122
  8. LAC B [Concomitant]
     Indication: COLITIS ULCERATIVE
     Route: 048
  9. ONEALFA [Concomitant]
     Indication: OSTEOPOROSIS PROPHYLAXIS
     Route: 048
  10. XYLOCAINE [Concomitant]
     Route: 048
     Dates: start: 20080305, end: 20080305
  11. OLIVE OIL [Concomitant]
     Route: 048
     Dates: start: 20080109, end: 20080109
  12. HUMAN INSULIN [Concomitant]
     Indication: DIABETES MELLITUS
     Dates: start: 20080416
  13. BARYTGEN [Concomitant]
     Route: 048
     Dates: start: 20080109, end: 20080109
  14. GLYCERIN [Concomitant]
     Dates: start: 20080305, end: 20080305
  15. REMICADE [Suspect]
     Indication: COLITIS ULCERATIVE
     Route: 042
     Dates: start: 20080110
  16. REMICADE [Suspect]
     Route: 042
     Dates: start: 20080611
  17. PENTASA [Concomitant]
     Indication: COLITIS ULCERATIVE
  18. MIYA BM [Concomitant]
     Indication: COLITIS ULCERATIVE
     Route: 048
  19. ISONIAZID [Concomitant]
     Indication: ANTIBIOTIC PROPHYLAXIS
     Dosage: BEFORE 10-JAN-2008
     Route: 048
     Dates: end: 20081008
  20. OLIVE OIL [Concomitant]
     Indication: PREMEDICATION
     Route: 048
     Dates: start: 20080305, end: 20080305
  21. RESTAMIN [Concomitant]
     Indication: PREMEDICATION
     Route: 048
     Dates: start: 20080416, end: 20080416
  22. RESTAMIN [Concomitant]
     Route: 048
     Dates: start: 20080611, end: 20080611
  23. RESTAMIN [Concomitant]
     Route: 048
     Dates: start: 20080220, end: 20080220
  24. RESTAMIN [Concomitant]
     Route: 048
     Dates: start: 20080123, end: 20080123
  25. BARYTGEN [Concomitant]
     Indication: PREMEDICATION
     Route: 048
     Dates: start: 20080305, end: 20080305
  26. XYLOCAINE [Concomitant]
     Indication: PREMEDICATION
     Route: 048
     Dates: start: 20080109, end: 20080109
  27. GLYCERIN [Concomitant]
     Indication: PREMEDICATION
     Dates: start: 20080806, end: 20080806
  28. REMICADE [Suspect]
     Route: 042
     Dates: start: 20080123
  29. XYLOCAINE [Concomitant]
     Route: 048
     Dates: start: 20080806, end: 20080806
  30. RESTAMIN [Concomitant]
     Route: 048
     Dates: start: 20080110, end: 20080110
  31. HUMAN INSULIN [Concomitant]
     Dates: start: 20080123, end: 20080124
  32. GLYCERIN [Concomitant]
     Dates: start: 20080109, end: 20080109

REACTIONS (6)
  - NAUSEA [None]
  - ACUTE MYOCARDIAL INFARCTION [None]
  - HYPOTENSION [None]
  - LOSS OF CONSCIOUSNESS [None]
  - SMALL INTESTINE CARCINOMA [None]
  - VOMITING [None]
